FAERS Safety Report 19733400 (Version 1)
Quarter: 2021Q3

REPORT INFORMATION
  Report Type: Spontaneous
  Country: RO (occurrence: RO)
  Receive Date: 20210823
  Receipt Date: 20210823
  Transmission Date: 20211014
  Serious: Yes (Hospitalization)
  Sender: FDA-Public Use
  Company Number: RO-IPCA LABORATORIES LIMITED-IPC-2021-RO-001561

PATIENT

DRUGS (6)
  1. URSODEOXYCHOLIC ACID [Concomitant]
     Active Substance: URSODIOL
     Indication: CHOLESTASIS
     Dosage: 10 MILLIGRAM/KILOGRAM, QD
     Route: 065
  2. PROPRANOLOL [Suspect]
     Active Substance: PROPRANOLOL HYDROCHLORIDE
     Indication: HAEMANGIOMA OF LIVER
     Dosage: 1 MILLIGRAM/KILOGRAM, QD
     Route: 048
  3. PROPRANOLOL [Suspect]
     Active Substance: PROPRANOLOL HYDROCHLORIDE
     Dosage: 3 MILLIGRAM/KILOGRAM, QD
     Route: 048
  4. PROPRANOLOL [Suspect]
     Active Substance: PROPRANOLOL HYDROCHLORIDE
     Dosage: 3.5 MILLIGRAM/KILOGRAM, QD
     Route: 048
  5. SIROLIMUS. [Suspect]
     Active Substance: SIROLIMUS
     Indication: HAEMANGIOMA OF LIVER
     Dosage: 0.4 MILLIGRAM/SQ. METER/DOSE, BID
     Route: 048
  6. SIROLIMUS. [Suspect]
     Active Substance: SIROLIMUS
     Dosage: 0.55 MILLIGRAM/SQ. METER
     Route: 048

REACTIONS (3)
  - Hypertriglyceridaemia [Unknown]
  - High density lipoprotein decreased [Unknown]
  - Dyslipidaemia [Unknown]
